FAERS Safety Report 6945960-X (Version None)
Quarter: 2010Q3

REPORT INFORMATION
  Report Type: 
  Country: None (occurrence: None)
  Receive Date: 20100827
  Receipt Date: 20100826
  Transmission Date: 20110219
  Serious: Yes (Other)
  Sender: FDA-Public Use
  Company Number: US-PURDUE-USA-2010-0046067

PATIENT
  Age: 45 Year
  Sex: Female

DRUGS (1)
  1. OXYCONTIN [Suspect]
     Indication: CANCER PAIN
     Dosage: 80 MG, TID

REACTIONS (5)
  - CONSTIPATION [None]
  - INTESTINAL OBSTRUCTION [None]
  - MALAISE [None]
  - PYREXIA [None]
  - VOMITING [None]
